FAERS Safety Report 26043042 (Version 1)
Quarter: 2025Q4

REPORT INFORMATION
  Report Type: Spontaneous
  Country: US (occurrence: US)
  Receive Date: 20251113
  Receipt Date: 20251113
  Transmission Date: 20260117
  Serious: No
  Sender: ANI
  Company Number: US-ANIPHARMA-2025-US-049051

PATIENT
  Sex: Male

DRUGS (1)
  1. CORTICOTROPIN [Suspect]
     Active Substance: CORTICOTROPIN
     Indication: Gout
     Dosage: 40 UNITS SC ONCE A WEEK
     Route: 058
     Dates: start: 20250806

REACTIONS (3)
  - Cardiac flutter [Unknown]
  - Constipation [Not Recovered/Not Resolved]
  - Blood uric acid increased [Not Recovered/Not Resolved]

NARRATIVE: CASE EVENT DATE: 20250806
